FAERS Safety Report 9140256 (Version 1)
Quarter: 2013Q1

REPORT INFORMATION
  Report Type: Spontaneous
  Country: BR (occurrence: BR)
  Receive Date: 20130305
  Receipt Date: 20130305
  Transmission Date: 20140127
  Serious: Yes (Death, Other)
  Sender: FDA-Public Use
  Company Number: BR-MERCK-1302BRA013572

PATIENT
  Sex: Male

DRUGS (2)
  1. PEGINTERFERON ALFA-2B [Suspect]
     Indication: HEPATITIS C
     Dosage: 80 MICROGRAM, UNKNOWN
     Route: 058
     Dates: start: 2009
  2. RIBAVIRIN [Concomitant]
     Indication: HEPATITIS
     Dosage: UNK, UNKNOWN
     Route: 048
     Dates: start: 2009

REACTIONS (1)
  - Bile duct cancer [Fatal]
